FAERS Safety Report 5685202-9 (Version None)
Quarter: 2008Q1

REPORT INFORMATION
  Report Type: 
  Country: None (occurrence: None)
  Receive Date: 20080328
  Receipt Date: 20080319
  Transmission Date: 20080703
  Serious: Yes (Other)
  Sender: FDA-Public Use
  Company Number: US-PFIZER INC-2007102328

PATIENT
  Age: 66 Year
  Sex: Male
  Weight: 77 kg

DRUGS (1)
  1. SUTENT [Suspect]
     Indication: RENAL CELL CARCINOMA
     Route: 048

REACTIONS (2)
  - HYPERTHYROIDISM [None]
  - WEIGHT DECREASED [None]
